FAERS Safety Report 15314440 (Version 2)
Quarter: 2018Q4

REPORT INFORMATION
  Report Type: Spontaneous
  Country: US (occurrence: US)
  Receive Date: 20180824
  Receipt Date: 20181029
  Transmission Date: 20190204
  Serious: No
  Sender: FDA-Public Use
  Company Number: US-PFIZER INC-2018340397

PATIENT
  Age: 38 Year
  Sex: Female
  Weight: 175 kg

DRUGS (15)
  1. LEVOTHYROXINE (LEVOTHROID/SYNTHROID) [Concomitant]
     Indication: THYROID HORMONE REPLACEMENT THERAPY
     Dosage: 88 UG, DAILY (TAKE 1 TABLET BY MOUTH DAILY)
     Route: 048
  2. LYRICA [Suspect]
     Active Substance: PREGABALIN
     Dosage: 100 MG, 2X/DAY (QTY; 180(ONE HUNDRED EIGHTY), SIG; TAKE ONE CAPSULE TWICE DAILY)
     Route: 048
  3. ZIPRASIDONE. [Concomitant]
     Active Substance: ZIPRASIDONE
     Dosage: UNK, AS NEEDED (2 TO 3 TABLETS ORALLY ONCE DAILY AS NEEDED)
     Route: 048
  4. VENTOLIN HFA [Concomitant]
     Active Substance: ALBUTEROL SULFATE
     Indication: WHEEZING
     Dosage: UNK UNK, AS NEEDED (INHALE 1 TO 2 PUFFS BY MOUTH EVERY 4 TO 6 HOURS)
     Route: 048
  5. VENTOLIN HFA [Concomitant]
     Active Substance: ALBUTEROL SULFATE
     Indication: DYSPNOEA
  6. MULTIVITAMIN WITH MINERALS [Concomitant]
     Active Substance: MINERALS\VITAMINS
     Dosage: 1 DF, 1X/DAY (TAKE 1 TAB PO ONCE DAILY)
     Route: 048
  7. RESTORIL [Concomitant]
     Active Substance: TEMAZEPAM
     Indication: SLEEP DISORDER
     Dosage: 30 MG, AS NEEDED (TAKE 1 CAPSULES BY MOUTH AT BED TIME AS NEEDED)
     Route: 048
     Dates: start: 20180712
  8. LIDOCAINE. [Concomitant]
     Active Substance: LIDOCAINE
     Dosage: UNK APPLY TO AFFECTED AREAS 3 TO 4 TIMES A DAY
  9. LITHOBID [Concomitant]
     Active Substance: LITHIUM CARBONATE
     Dosage: 900 MG, DAILY (TAKE 3 TABLET BY MOUTH DAILY AT BEDTIME)
     Route: 048
  10. VENTOLIN HFA [Concomitant]
     Active Substance: ALBUTEROL SULFATE
     Indication: ASTHMA
  11. DEXEDRINE [Concomitant]
     Active Substance: DEXTROAMPHETAMINE SULFATE
     Indication: ATTENTION DEFICIT/HYPERACTIVITY DISORDER
     Dosage: 20 MG, 2X/DAY (TAKE 2 CAPSULES BY A MOUTH 2 TIMES A DAY)
     Route: 048
     Dates: start: 20180712
  12. CYMBALTA [Concomitant]
     Active Substance: DULOXETINE HYDROCHLORIDE
     Dosage: 90 MG, DAILY (TAKE 3 CAPSULE BY MOUTH DAILY)
     Route: 048
  13. ALDACTONE [Concomitant]
     Active Substance: SPIRONOLACTONE
     Dosage: UNK, AS NEEDED (2 TO 3 TABLETS ORALLY ONCE DAILY AS NEEDED)
     Route: 048
  14. LAMICTAL [Concomitant]
     Active Substance: LAMOTRIGINE
     Indication: AFFECTIVE DISORDER
     Dosage: 200 MG, DAILY (TAKE 1 TABLET BY MOUTH DAILY FOR MOOD)
     Route: 048
  15. LYRICA [Suspect]
     Active Substance: PREGABALIN
     Indication: PAIN
     Dosage: UNK, TO BE TAKEN DAILY

REACTIONS (1)
  - No adverse event [Unknown]
